FAERS Safety Report 6636916-5 (Version None)
Quarter: 2010Q1

REPORT INFORMATION
  Report Type: 
  Country: None (occurrence: None)
  Receive Date: 20100316
  Receipt Date: 20100222
  Transmission Date: 20100710
  Serious: No
  Sender: FDA-Public Use
  Company Number: US-BAYER-201015364NA

PATIENT
  Age: 47 Year
  Sex: Female

DRUGS (1)
  1. MAGNEVIST [Suspect]
     Indication: IMAGING PROCEDURE
     Dosage: TOTAL DAILY DOSE: 14 ML
     Route: 042

REACTIONS (2)
  - RASH MACULAR [None]
  - URTICARIA [None]
